FAERS Safety Report 4752201-0 (Version None)
Quarter: 2005Q3

REPORT INFORMATION
  Report Type: 
  Country: None (occurrence: None)
  Receive Date: 20050825
  Receipt Date: 20050706
  Transmission Date: 20060218
  Serious: Yes (Other)
  Sender: FDA-Public Use
  Company Number: 2005CG01234

PATIENT
  Age: 756 Month
  Sex: Male
  Weight: 78 kg

DRUGS (4)
  1. CRESTOR [Suspect]
     Indication: HYPERCHOLESTEROLAEMIA
     Route: 048
  2. PLAVIX [Suspect]
     Route: 048
     Dates: start: 20050526
  3. TARKA LP [Suspect]
     Route: 048
     Dates: start: 20050526
  4. MICARDIS LP [Suspect]
     Route: 048
     Dates: start: 20050526

REACTIONS (2)
  - GINGIVAL HYPERPLASIA [None]
  - GLOSSITIS [None]
